FAERS Safety Report 4614206-X (Version None)
Quarter: 2005Q1

REPORT INFORMATION
  Report Type: 
  Country: None (occurrence: None)
  Receive Date: 20050316
  Receipt Date: 20050303
  Transmission Date: 20050727
  Serious: No
  Sender: FDA-Public Use
  Company Number: 2005CG00352

PATIENT
  Age: 61 Year
  Sex: Male
  Weight: 80 kg

DRUGS (3)
  1. CRESTOR [Suspect]
     Indication: DYSLIPIDAEMIA
     Dosage: 10 MG QD PO
     Route: 048
     Dates: start: 20041012, end: 20050207
  2. AMARYL [Concomitant]
  3. QUINAPRIL HYDROCHLORIDE AND HYDROCHLOROTHIAZDE [Concomitant]

REACTIONS (5)
  - DIARRHOEA [None]
  - HEPATITIS [None]
  - HYPERHIDROSIS [None]
  - VOMITING [None]
  - WEIGHT DECREASED [None]
